FAERS Safety Report 7655917-1 (Version None)
Quarter: 2011Q3

REPORT INFORMATION
  Report Type: 
  Country: None (occurrence: None)
  Receive Date: 20110804
  Receipt Date: 20110804
  Transmission Date: 20111222
  Serious: Yes (Other)
  Sender: FDA-Public Use
  Company Number: None

PATIENT
  Age: 42 Year
  Sex: Male
  Weight: 75.296 kg

DRUGS (1)
  1. PROPECIA [Suspect]
     Indication: ANDROGENETIC ALOPECIA
     Dates: start: 19990101, end: 20090801

REACTIONS (8)
  - MUSCLE ATROPHY [None]
  - DEPRESSION [None]
  - BLOOD TESTOSTERONE DECREASED [None]
  - LIBIDO DECREASED [None]
  - POOR QUALITY SLEEP [None]
  - MENTAL DISORDER [None]
  - FATIGUE [None]
  - ANHEDONIA [None]
